FAERS Safety Report 20761936 (Version 2)
Quarter: 2022Q2

REPORT INFORMATION
  Report Type: Spontaneous
  Country: US (occurrence: US)
  Receive Date: 20220428
  Receipt Date: 20220525
  Transmission Date: 20220720
  Serious: Yes (Hospitalization)
  Sender: FDA-Public Use
  Company Number: None

PATIENT
  Sex: Female

DRUGS (9)
  1. DEXAMETHASONE [Suspect]
     Active Substance: DEXAMETHASONE
     Indication: Haemophagocytic lymphohistiocytosis
     Dosage: UNK
     Route: 065
  2. ETOPOSIDE [Suspect]
     Active Substance: ETOPOSIDE
     Indication: Haemophagocytic lymphohistiocytosis
     Dosage: UNK
     Route: 065
  3. PREDNISOLONE [Suspect]
     Active Substance: PREDNISOLONE
     Indication: Haemophagocytic lymphohistiocytosis
     Dosage: 50 MILLIGRAM PER DAY
     Route: 065
  4. PREDNISOLONE [Suspect]
     Active Substance: PREDNISOLONE
     Dosage: 2 DOSAGE FORM, TOTAL (STRENGTH: 1000 MG)
     Route: 065
  5. SOLU-MEDROL [Suspect]
     Active Substance: METHYLPREDNISOLONE SODIUM SUCCINATE
     Indication: Haemophagocytic lymphohistiocytosis
     Dosage: 1000 MILLIGRAM (2 DOSES)
     Route: 065
  6. EMAPALUMAB LZSG [Concomitant]
     Indication: Haemophagocytic lymphohistiocytosis
     Dosage: UNK
     Route: 065
  7. EMAPALUMAB LZSG [Concomitant]
     Dosage: UNK
     Route: 065
  8. EMAPALUMAB LZSG [Concomitant]
     Dosage: UNK
     Route: 065
  9. EMAPALUMAB LZSG [Concomitant]
     Dosage: UNK (TAPERED )
     Route: 065

REACTIONS (8)
  - Haemodynamic instability [Unknown]
  - Neutropenia [Unknown]
  - Pancytopenia [Unknown]
  - Febrile neutropenia [Unknown]
  - Drug ineffective [Unknown]
  - Drug intolerance [Unknown]
  - Treatment failure [Unknown]
  - Off label use [Unknown]
